FAERS Safety Report 7514078-X (Version None)
Quarter: 2011Q2

REPORT INFORMATION
  Report Type: 
  Country: None (occurrence: None)
  Receive Date: 20110531
  Receipt Date: 20110518
  Transmission Date: 20111010
  Serious: Yes (Life-Threatening)
  Sender: FDA-Public Use
  Company Number: JP-BAYER-2011-032640

PATIENT
  Age: 72 Year
  Sex: Male
  Weight: 55.782 kg

DRUGS (13)
  1. ALPROSTADIL [Suspect]
     Indication: PAIN IN EXTREMITY
     Dosage: DAILY DOSE 10 ?G
     Route: 042
     Dates: start: 20110301, end: 20110405
  2. PREDNISOLONE [Concomitant]
     Dosage: DAILY DOSE 3 MG
     Route: 048
     Dates: start: 20101101, end: 20110405
  3. CRESTOR [Concomitant]
     Indication: HYPERLIPIDAEMIA
     Dosage: DAILY DOSE 5 MG
     Route: 048
     Dates: start: 20090101, end: 20110405
  4. LOXONIN [Concomitant]
     Indication: ANALGESIC THERAPY
     Dosage: 600 MG, PRN
     Route: 048
     Dates: start: 20110403
  5. CALCIUM CARBONATE [Concomitant]
     Dosage: DAILY DOSE 3 G
     Route: 048
     Dates: start: 20101101, end: 20110405
  6. AVELOX [Suspect]
     Indication: PLEURISY
     Dosage: 200 MG, QD
     Route: 048
     Dates: start: 20110403, end: 20110405
  7. ALPROSTADIL [Suspect]
     Dosage: DAILY DOSE 10 ?G
     Route: 042
     Dates: start: 20110301, end: 20110405
  8. VERAPAMIL HCL [Concomitant]
     Indication: ATRIAL FIBRILLATION
     Dosage: DAILY DOSE 240 MG
     Route: 048
     Dates: start: 20101101, end: 20110405
  9. CLARITHROMYCIN [Concomitant]
     Indication: BRONCHITIS CHRONIC
     Dosage: DAILY DOSE 200 MG
     Route: 048
     Dates: start: 20101101, end: 20110405
  10. PURSENNID [Concomitant]
     Indication: CONSTIPATION
     Dosage: DAILY DOSE 24 MG
     Route: 048
     Dates: start: 20090101, end: 20110405
  11. RED CELLS MAP [Concomitant]
     Dosage: UNK
     Route: 042
  12. BIO THREE [CLOSTRID BUTYRICUM,LACTOBAC ACIDOPH,SACCHAROM BOULAR] [Concomitant]
     Indication: CONSTIPATION
     Dosage: DAILY DOSE 3 DF
     Route: 048
     Dates: start: 20101101, end: 20110405
  13. PLATELETS [Concomitant]
     Dosage: UNK
     Route: 042

REACTIONS (1)
  - HEPATITIS FULMINANT [None]
